FAERS Safety Report 23934630 (Version 3)
Quarter: 2025Q1

REPORT INFORMATION
  Report Type: Spontaneous
  Country: MX (occurrence: MX)
  Receive Date: 20240603
  Receipt Date: 20250120
  Transmission Date: 20250408
  Serious: Yes (Death, Other)
  Sender: JOHNSON AND JOHNSON
  Company Number: MX-JNJFOC-20240585629

PATIENT
  Sex: Male

DRUGS (2)
  1. TECLISTAMAB [Suspect]
     Active Substance: TECLISTAMAB
     Indication: Plasma cell myeloma
     Route: 058
     Dates: start: 20240515
  2. TECLISTAMAB [Suspect]
     Active Substance: TECLISTAMAB
     Route: 058

REACTIONS (2)
  - Pulmonary embolism [Fatal]
  - Plasma cell myeloma refractory [Unknown]
